FAERS Safety Report 20299547 (Version 6)
Quarter: 2024Q1

REPORT INFORMATION
  Report Type: Spontaneous
  Country: DE (occurrence: DE)
  Receive Date: 20220105
  Receipt Date: 20240109
  Transmission Date: 20240410
  Serious: Yes (Hospitalization, Other)
  Sender: FDA-Public Use
  Company Number: DE-ADRED-07399-01

PATIENT
  Age: 86 Year
  Sex: Male

DRUGS (9)
  1. APIXABAN [Suspect]
     Active Substance: APIXABAN
     Indication: Product used for unknown indication
     Dosage: 5 MILLIGRAM, BID, (5 MG, 1-0-1-0)
     Route: 048
  2. TORSEMIDE [Suspect]
     Active Substance: TORSEMIDE
     Indication: Product used for unknown indication
     Dosage: (10 MG, 1-1-0-0) 0.5 DAY
     Route: 048
  3. METOPROLOL [Concomitant]
     Active Substance: METOPROLOL
     Indication: Product used for unknown indication
     Dosage: 50 MILLIGRAM, (50 MG, 0.5-0-0-0)
     Route: 048
  4. ATORVASTATIN [Concomitant]
     Active Substance: ATORVASTATIN
     Indication: Product used for unknown indication
     Dosage: 40 MILLIGRAM, QD, (40 MG, 0-0-1-0)
     Route: 048
  5. ZOLPIDEM [Concomitant]
     Active Substance: ZOLPIDEM TARTRATE
     Indication: Product used for unknown indication
     Dosage: 10 MILLIGRAM,IF NECESSARY
     Route: 048
  6. MOXONIDIN 1 A PHARM [Concomitant]
     Indication: Product used for unknown indication
     Dosage: 0.3 MILLIGRAM, QD
     Route: 048
  7. Fluor-vigantoletten [Concomitant]
     Indication: Product used for unknown indication
     Dosage: 1000 INTERNATIONAL UNIT, QD, (1000 IU, 1-0-0-0)
     Route: 048
  8. PANTOPRAZOLE SODIUM [Concomitant]
     Active Substance: PANTOPRAZOLE SODIUM
     Indication: Product used for unknown indication
     Dosage: 40 MILLIGRAM, QD
     Route: 048
  9. CANDESARTAN [Concomitant]
     Active Substance: CANDESARTAN
     Indication: Product used for unknown indication
     Dosage: 16 MILLIGRAM, BID, 0.5DAY
     Route: 048

REACTIONS (11)
  - Musculoskeletal pain [Unknown]
  - Peripheral swelling [Recovering/Resolving]
  - Pain [Unknown]
  - Pain in extremity [Unknown]
  - Renal failure [Unknown]
  - Blood creatinine increased [Unknown]
  - Muscle haemorrhage [Unknown]
  - Product prescribing error [Unknown]
  - Medication error [Unknown]
  - Off label use [Unknown]
  - Anaemia [Unknown]
